FAERS Safety Report 5763465-9 (Version None)
Quarter: 2008Q2

REPORT INFORMATION
  Report Type: 
  Country: None (occurrence: None)
  Receive Date: 20080605
  Receipt Date: 20080521
  Transmission Date: 20081010
  Serious: Yes (Hospitalization)
  Sender: FDA-Public Use
  Company Number: 2008001192

PATIENT
  Age: 63 Year
  Sex: Male

DRUGS (8)
  1. TARCEVA [Suspect]
     Indication: NON-SMALL CELL LUNG CANCER
     Dosage: (150 MG,QD), ORAL
     Route: 048
     Dates: end: 20080515
  2. PROPRANOLOL [Concomitant]
  3. PERINDOPRIL ERBUMINE [Concomitant]
  4. LASIX [Concomitant]
  5. ASH [Concomitant]
  6. PLAVIX [Concomitant]
  7. SOTALOL HCL [Concomitant]
  8. HYDROCHLOROTHIAZIDE [Concomitant]

REACTIONS (13)
  - ACIDOSIS [None]
  - ANOREXIA [None]
  - ASTHENIA [None]
  - DIARRHOEA [None]
  - DRUG INEFFECTIVE [None]
  - EXERCISE TOLERANCE DECREASED [None]
  - FATIGUE [None]
  - FLANK PAIN [None]
  - HYPERCALCAEMIA [None]
  - HYPERKALAEMIA [None]
  - NEPHROPATHY TOXIC [None]
  - RASH [None]
  - RENAL FAILURE [None]
